FAERS Safety Report 6206892-8 (Version None)
Quarter: 2009Q2

REPORT INFORMATION
  Report Type: 
  Country: None (occurrence: None)
  Receive Date: 20090521
  Receipt Date: 20090115
  Transmission Date: 20091009
  Serious: Yes (Other)
  Sender: FDA-Public Use
  Company Number: 2008S1022493

PATIENT
  Age: 64 Year
  Sex: Male

DRUGS (16)
  1. FENTANYL TRANSDERMAL SYSTEM [Suspect]
     Indication: BACK PAIN
     Dosage: 50 UG;EVERY HOUR; TRANSDERMAL
     Route: 062
     Dates: start: 20071101, end: 20081101
  2. FENTANYL TRANSDERMAL SYSTEM [Suspect]
     Indication: BACK PAIN
     Dosage: 25 UG;EVERY HOUR;TRANSDERMAL
     Route: 062
     Dates: start: 20081101
  3. FENTANYL TRANSDERMAL SYSTEM [Suspect]
     Indication: BACK PAIN
     Dosage: 12 UG;EVERY HOUR;TRANSDERMAL
     Route: 062
     Dates: start: 20081101
  4. LISINOPRIL [Suspect]
     Indication: HYPERTENSION
     Dosage: 20 MG;DAILY;ORAL
     Route: 048
  5. ESCITALOPRAM OXALATE [Suspect]
     Indication: DEPRESSION
     Dosage: 20 MG;DAILY;ORAL
     Route: 048
     Dates: start: 20080801
  6. ATENOLOL [Suspect]
     Dosage: 50 MG;DAILY;ORAL
     Route: 048
  7. AMLODIPINE [Suspect]
     Dosage: 10 MG;DAILY;ORAL
     Route: 048
  8. PEPCID [Concomitant]
  9. OMEPRAZOLE [Concomitant]
  10. POTASSIUM CHLORIDE [Concomitant]
  11. HYDROCHLOROTHIAZIDE [Concomitant]
  12. METFORMIN HYDROCHLORIDE [Concomitant]
  13. FERROUS SULFATE TAB [Concomitant]
  14. VITAMIN D [Concomitant]
  15. ASPIRIN [Concomitant]
  16. ZOLOFT [Concomitant]

REACTIONS (5)
  - ABDOMINAL PAIN [None]
  - DRUG DEPENDENCE [None]
  - DRUG WITHDRAWAL SYNDROME [None]
  - MALAISE [None]
  - SOMNOLENCE [None]
